FAERS Safety Report 9145549 (Version 1)
Quarter: 2013Q1

REPORT INFORMATION
  Report Type: Spontaneous
  Country: US (occurrence: US)
  Receive Date: 20130307
  Receipt Date: 20130307
  Transmission Date: 20140127
  Serious: No
  Sender: FDA-Public Use
  Company Number: US-PFIZER INC-2013074785

PATIENT
  Age: 64 Year
  Sex: Male
  Weight: 81.63 kg

DRUGS (3)
  1. VIAGRA [Suspect]
     Indication: ERECTILE DYSFUNCTION
     Dosage: 100 MG, AS NEEDED
     Dates: start: 2012
  2. TERAZOSIN [Interacting]
     Indication: BENIGN PROSTATIC HYPERPLASIA
     Dosage: 2 MG, DAILY
  3. CIALIS [Interacting]
     Indication: BENIGN PROSTATIC HYPERPLASIA
     Dosage: 5 MG, DAILY
     Dates: start: 2012

REACTIONS (2)
  - Drug interaction [Unknown]
  - Drug ineffective [Unknown]
